FAERS Safety Report 14584385 (Version 1)
Quarter: 2018Q1

REPORT INFORMATION
  Report Type: Report from Study
  Country: US (occurrence: US)
  Receive Date: 20180301
  Receipt Date: 20180301
  Transmission Date: 20180509
  Serious: Yes (Other)
  Sender: FDA-Public Use
  Company Number: US-CIPLA LTD.-2018US08460

PATIENT

DRUGS (2)
  1. TIPIFARNIB [Suspect]
     Active Substance: TIPIFARNIB
     Indication: BREAST CANCER METASTATIC
     Dosage: 300 MG, BID, DAYS 1 THROUGH 14, EVERY 21-DAY CYCLE
     Route: 048
  2. GEMCITABINE [Suspect]
     Active Substance: GEMCITABINE\GEMCITABINE HYDROCHLORIDE
     Indication: BREAST CANCER METASTATIC
     Dosage: 1000 MG/M2 ON DAYS 1 AND 8, EVERY 21-DAY CYCLE
     Route: 042

REACTIONS (1)
  - Malignant neoplasm progression [Unknown]
